FAERS Safety Report 17803909 (Version 1)
Quarter: 2020Q2

REPORT INFORMATION
  Report Type: Spontaneous
  Country: US (occurrence: US)
  Receive Date: 20200519
  Receipt Date: 20200519
  Transmission Date: 20200714
  Serious: Yes (Other)
  Sender: FDA-Public Use
  Company Number: US-PURDUE-USA-2020-0152902

PATIENT
  Sex: Male

DRUGS (2)
  1. HYDROCODONE BITARTRATE AND ACETAMINOPHEN [Suspect]
     Active Substance: ACETAMINOPHEN\HYDROCODONE BITARTRATE
     Indication: PRODUCT USED FOR UNKNOWN INDICATION
     Dosage: UNK
     Route: 048
  2. VICODIN [Suspect]
     Active Substance: ACETAMINOPHEN\HYDROCODONE BITARTRATE
     Indication: SURGERY
     Dosage: UNK
     Route: 065

REACTIONS (15)
  - General physical health deterioration [Unknown]
  - Mental disorder [Unknown]
  - Anxiety [Unknown]
  - Nerve injury [Unknown]
  - Drug withdrawal syndrome [Unknown]
  - Insomnia [Unknown]
  - Histrionic personality disorder [Unknown]
  - Developmental delay [Unknown]
  - Constipation [Unknown]
  - Drug dependence [Unknown]
  - Balance disorder [Unknown]
  - Urinary incontinence [Unknown]
  - Learning disability [Unknown]
  - Sleep disorder [Unknown]
  - Unevaluable event [Unknown]
